FAERS Safety Report 6681544-9 (Version None)
Quarter: 2010Q2

REPORT INFORMATION
  Report Type: 
  Country: None (occurrence: None)
  Receive Date: 20100414
  Receipt Date: 20100407
  Transmission Date: 20101027
  Serious: Yes (Hospitalization)
  Sender: FDA-Public Use
  Company Number: PHHO2010US04997

PATIENT
  Sex: Female
  Weight: 61 kg

DRUGS (7)
  1. ZOLEDRONATE T29581+SOLINF [Suspect]
     Indication: METASTASES TO BONE
     Dosage: 3.5 MG, EVERY 4 WEEKS
     Route: 042
     Dates: start: 20090504, end: 20100218
  2. VITAMIN D [Concomitant]
  3. CALCIUM [Concomitant]
  4. ASPIRIN [Concomitant]
  5. DECADRON [Concomitant]
  6. PLAVIX [Concomitant]
  7. PEPCID [Concomitant]

REACTIONS (15)
  - ABDOMINAL INFECTION [None]
  - ABDOMINAL PAIN [None]
  - EXCESSIVE GRANULATION TISSUE [None]
  - FIBROSIS [None]
  - INFLAMMATION [None]
  - INTESTINAL RESECTION [None]
  - LARGE INTESTINE PERFORATION [None]
  - LYMPHADENOPATHY [None]
  - MALIGNANT NEOPLASM PROGRESSION [None]
  - METASTASES TO CENTRAL NERVOUS SYSTEM [None]
  - PELVIC ABSCESS [None]
  - PELVIC FLUID COLLECTION [None]
  - PERITONITIS [None]
  - RENAL FAILURE [None]
  - SEPTIC SHOCK [None]
